FAERS Safety Report 5977378-0 (Version None)
Quarter: 2008Q4

REPORT INFORMATION
  Report Type: 
  Country: None (occurrence: None)
  Receive Date: 20081203
  Receipt Date: 20081126
  Transmission Date: 20090506
  Serious: Yes (Other)
  Sender: FDA-Public Use
  Company Number: PHEH2008US08388

PATIENT
  Sex: Female

DRUGS (4)
  1. FOCALIN XR [Suspect]
     Indication: PSYCHOMOTOR HYPERACTIVITY
     Dosage: 5 MG, QD
     Route: 048
     Dates: start: 20080808
  2. FOCALIN XR [Suspect]
     Dosage: 10 MG, UNK
     Route: 048
  3. CONCERTA [Concomitant]
     Indication: ATTENTION DEFICIT/HYPERACTIVITY DISORDER
     Dosage: 54 MG, UNK
  4. CONCERTA [Concomitant]
     Dosage: 18 MG, QD
     Route: 048

REACTIONS (2)
  - BREAST DISORDER [None]
  - BREAST ENLARGEMENT [None]
